FAERS Safety Report 5455011-4 (Version None)
Quarter: 2007Q3

REPORT INFORMATION
  Report Type: 
  Country: None (occurrence: None)
  Receive Date: 20070913
  Receipt Date: 20070830
  Transmission Date: 20080115
  Serious: Yes (Death)
  Sender: FDA-Public Use
  Company Number: CIP07001658

PATIENT
  Age: 72 Year
  Sex: Male

DRUGS (21)
  1. DANTRIUM [Suspect]
     Indication: NEUROLEPTIC MALIGNANT SYNDROME
     Dosage: 40 MG, 1 ONLY, IV DRIP; 60 MG, 1 ONLY, IV DRIP
     Route: 041
     Dates: start: 20070821, end: 20070821
  2. DANTRIUM [Suspect]
     Indication: NEUROLEPTIC MALIGNANT SYNDROME
     Dosage: 40 MG, 1 ONLY, IV DRIP; 60 MG, 1 ONLY, IV DRIP
     Route: 041
     Dates: start: 20070821, end: 20070821
  3. DANTRIUM [Suspect]
     Indication: NEUROLEPTIC MALIGNANT SYNDROME
     Dosage: 40 MG, 1 ONLY, IV DRIP; 60 MG, 1 ONLY, IV DRIP
     Route: 041
     Dates: start: 20070821, end: 20070821
  4. DORAL [Concomitant]
  5. GASMOTIN (MOSAPRIDE CITRATE) [Concomitant]
  6. RIZE (CLOTIAZEPAM) [Concomitant]
  7. DOXAZOSIN MESYLATE [Concomitant]
  8. JUVELA N (TOCOPHERYL NICOTINATE) [Concomitant]
  9. METHYCOBAL (CYANOCOBALAMIN) [Concomitant]
  10. DIOVAN [Concomitant]
  11. ARICEPT [Concomitant]
  12. EURODIN (DIHYDROERGOCRISTINE MESILATE) [Concomitant]
  13. ZOLPIDEM TARTRATE [Concomitant]
  14. NORVASC [Concomitant]
  15. BUP-4 (PROPIVERINE HYDROCHLORIDE) [Concomitant]
  16. GLUCOBAY [Concomitant]
  17. LANSOPRAZOLE [Concomitant]
  18. ITORAT CHEMIPHAR (ITRACONAZOLE) [Concomitant]
  19. FLENIED (CILOSTAZOL) [Concomitant]
  20. ASPIRIN [Concomitant]
  21. MUCOSTA (REBAMIPIDE) [Concomitant]

REACTIONS (1)
  - CARDIO-RESPIRATORY ARREST [None]
